FAERS Safety Report 16366266 (Version 2)
Quarter: 2019Q2

REPORT INFORMATION
  Report Type: Spontaneous
  Country: JP (occurrence: JP)
  Receive Date: 20190529
  Receipt Date: 20190627
  Transmission Date: 20190711
  Serious: Yes (Hospitalization)
  Sender: FDA-Public Use
  Company Number: JP-BAYER-2019-103613

PATIENT
  Age: 74 Year
  Sex: Male

DRUGS (9)
  1. GLUCOBAY [Suspect]
     Active Substance: ACARBOSE
     Indication: HYPERGLYCAEMIA
     Dosage: DAILY DOSE 200 MG
     Route: 048
     Dates: start: 20190524, end: 20190525
  2. BIOFERMIN [LACTOMIN] [Concomitant]
  3. BAYASPIRIN 100 MG [Concomitant]
     Active Substance: ASPIRIN
  4. SIGMART [Concomitant]
     Active Substance: NICORANDIL
  5. PARIET [Concomitant]
     Active Substance: RABEPRAZOLE SODIUM
  6. EQUA [Concomitant]
     Active Substance: VILDAGLIPTIN
  7. CALCIUM [Concomitant]
     Active Substance: CALCIUM
  8. ADALAT [Concomitant]
     Active Substance: NIFEDIPINE
  9. CRESTOR [Concomitant]
     Active Substance: ROSUVASTATIN CALCIUM

REACTIONS (2)
  - Gastrointestinal necrosis [Unknown]
  - Product prescribing issue [None]

NARRATIVE: CASE EVENT DATE: 20190525
